FAERS Safety Report 24226147 (Version 1)
Quarter: 2024Q3

REPORT INFORMATION
  Report Type: Spontaneous
  Country: JP (occurrence: JP)
  Receive Date: 20240820
  Receipt Date: 20240820
  Transmission Date: 20241017
  Serious: Yes (Hospitalization, Other)
  Sender: AMGEN
  Company Number: JP-AMGEN-JPNSP2024161027

PATIENT
  Age: 90 Year

DRUGS (2)
  1. EVENITY [Suspect]
     Active Substance: ROMOSOZUMAB-AQQG
     Indication: Osteoporosis
     Dosage: 210 MILLIGRAM, QMO
     Route: 058
  2. TERIPARATIDE ACETATE [Concomitant]
     Active Substance: TERIPARATIDE ACETATE
     Indication: Osteoporosis
     Dosage: UNK

REACTIONS (4)
  - Lumbar vertebral fracture [Unknown]
  - Unevaluable event [Unknown]
  - Osteoporosis [Unknown]
  - Therapy non-responder [Unknown]
